FAERS Safety Report 7854068-0 (Version None)
Quarter: 2011Q4

REPORT INFORMATION
  Report Type: 
  Country: None (occurrence: None)
  Receive Date: 20111026
  Receipt Date: 20111020
  Transmission Date: 20120403
  Serious: No
  Sender: FDA-Public Use
  Company Number: US-PFIZER INC-2011255398

PATIENT
  Sex: Male

DRUGS (2)
  1. BENAZEPRIL HYDROCHLORIDE [Suspect]
     Dosage: UNK
  2. AMLODIPINE BESYLATE [Suspect]
     Dosage: UNK

REACTIONS (1)
  - OEDEMA PERIPHERAL [None]
